FAERS Safety Report 13910741 (Version 1)
Quarter: 2017Q3

REPORT INFORMATION
  Report Type: Spontaneous
  Country: FR (occurrence: FR)
  Receive Date: 20170828
  Receipt Date: 20170828
  Transmission Date: 20171127
  Serious: Yes (Life-Threatening)
  Sender: FDA-Public Use
  Company Number: FR-ASTRAZENECA-2017SE87490

PATIENT
  Age: 12159 Day
  Sex: Female

DRUGS (9)
  1. ISOPTINE [Suspect]
     Active Substance: VERAPAMIL HYDROCHLORIDE
     Indication: CLUSTER HEADACHE
     Dosage: DAILY
     Route: 048
     Dates: start: 201706, end: 20170715
  2. XEROQUEL [Suspect]
     Active Substance: QUETIAPINE FUMARATE
     Dosage: 50 MG/DAY IN THE MORNING
     Route: 048
  3. VALIUM [Concomitant]
     Active Substance: DIAZEPAM
     Dosage: ROCHE 10 MG DAY IN THE EVENING
     Route: 048
  4. ISOPTINE [Suspect]
     Active Substance: VERAPAMIL HYDROCHLORIDE
     Indication: CLUSTER HEADACHE
     Dosage: 360 MG TWICE A DAY
     Route: 048
     Dates: start: 20170716, end: 20170725
  5. BILASTINE [Concomitant]
     Active Substance: BILASTINE
     Route: 048
  6. ISOPTINE [Suspect]
     Active Substance: VERAPAMIL HYDROCHLORIDE
     Indication: CLUSTER HEADACHE
     Dosage: ONE DOSE FORM IN THE MORNING AND ONE DOSE FORM IN THE EVENING.
     Route: 048
  7. INEXIUM [Concomitant]
     Active Substance: ESOMEPRAZOLE
     Route: 048
  8. IMIJECT [Concomitant]
     Active Substance: SUMATRIPTAN SUCCINATE
     Route: 058
  9. LAROXYL [Suspect]
     Active Substance: AMITRIPTYLINE
     Dosage: 25 MG/DAY IN THE EVENING
     Route: 048

REACTIONS (3)
  - Circulatory collapse [Recovered/Resolved]
  - Vasoplegia syndrome [Recovered/Resolved]
  - Hypotension [Recovered/Resolved]

NARRATIVE: CASE EVENT DATE: 20170723
